FAERS Safety Report 4843212-5 (Version None)
Quarter: 2005Q4

REPORT INFORMATION
  Report Type: 
  Country: None (occurrence: None)
  Receive Date: 20051027
  Receipt Date: 20041012
  Transmission Date: 20060501
  Serious: Yes (Hospitalization)
  Sender: FDA-Public Use
  Company Number: HQWYE779315OCT04

PATIENT
  Age: 33 Year
  Sex: Female
  Weight: 55.39 kg

DRUGS (1)
  1. PREMARIN [Suspect]
     Indication: HYSTERECTOMY
     Dosage: 1.25 MG DAILY, ORAL
     Route: 048
     Dates: start: 20020901

REACTIONS (1)
  - CEREBROVASCULAR ACCIDENT [None]
